FAERS Safety Report 8800618 (Version 1)
Quarter: 2012Q4

REPORT INFORMATION
  Report Type: 
  Country: US (occurrence: US)
  Receive Date: 20120921
  Receipt Date: 20120921
  Transmission Date: 20130627
  Serious: Yes (Hospitalization, Other)
  Sender: FDA-Public Use
  Company Number: US-ELI_LILLY_AND_COMPANY-US201209004057

PATIENT
  Age: 65 Year
  Sex: Male
  Weight: 173 kg

DRUGS (4)
  1. HUMULIN 30% REGULAR, 70% NPH [Suspect]
     Indication: DIABETES MELLITUS
     Dosage: 80 u, bid
     Dates: start: 2002
  2. ORAL ANTIDIABETICS [Concomitant]
     Dosage: 1 DF, bid
  3. CORTICOSTEROIDS [Concomitant]
  4. OXYGEN [Concomitant]
     Indication: SLEEP APNOEA SYNDROME

REACTIONS (8)
  - Hospitalisation [Recovered/Resolved]
  - Tachycardia [Unknown]
  - Neuropathy peripheral [Unknown]
  - Arthritis [Unknown]
  - Emphysema [Unknown]
  - Hypertension [Unknown]
  - Sleep apnoea syndrome [Unknown]
  - Weight increased [Not Recovered/Not Resolved]
